FAERS Safety Report 8523297-5 (Version None)
Quarter: 2012Q3

REPORT INFORMATION
  Report Type: 
  Country: None (occurrence: None)
  Receive Date: 20120706
  Receipt Date: 20120621
  Transmission Date: 20120928
  Serious: Yes (Hospitalization)
  Sender: FDA-Public Use
  Company Number: 2012RR-56896

PATIENT
  Age: 76 Year
  Sex: Female
  Weight: 70 kg

DRUGS (18)
  1. SERETIDE (FLUTICASONE PROPIONATE, SALMETEROL, XINAFOATE) [Concomitant]
  2. SIMVASTATIN [Concomitant]
  3. DUOVENT (FENOTEROL HYDROBROMIDE, IPRATOPIUM BROMIDE) [Concomitant]
  4. KALEORID (POTASIUM CHLORIDE) [Concomitant]
  5. SPIRIVA [Concomitant]
  6. FUROSEMIDE [Concomitant]
  7. DIGOXIN [Concomitant]
  8. SERTRALIN ^ACTAVIS^ (SERTRALIN) [Concomitant]
  9. LOSARTAN ^BLUEFISH^ (LOSARTAN) [Concomitant]
  10. MORPHINE SULFATE [Concomitant]
  11. PREDNISOLONE [Concomitant]
  12. BRICANYL [Concomitant]
  13. ZOLPIDEM TARTRATE [Concomitant]
  14. BERODUAL (FENOTEROLHYDROBROMIDE, IPRATROPIUM BROMIDE) [Concomitant]
  15. PRADAXA [Suspect]
     Indication: ATRIAL FIBRILLATION
     Dosage: 150MG X 2 ORAL
     Route: 048
     Dates: start: 20111205, end: 20120424
  16. ISOPTIN RETARD (VERAPAMIL) [Concomitant]
  17. ACETAMINOPHEN [Concomitant]
  18. OXAZEPAM [Concomitant]

REACTIONS (3)
  - GASTRIC ULCER [None]
  - IRON DEFICIENCY ANAEMIA [None]
  - ABDOMINAL PAIN UPPER [None]
